FAERS Safety Report 7516428-7 (Version None)
Quarter: 2011Q2

REPORT INFORMATION
  Report Type: 
  Country: None (occurrence: None)
  Receive Date: 20110601
  Receipt Date: 20110525
  Transmission Date: 20111010
  Serious: Yes (Hospitalization)
  Sender: FDA-Public Use
  Company Number: US-PFIZER INC-2011113183

PATIENT
  Sex: Female

DRUGS (2)
  1. ARICEPT [Suspect]
  2. ZOLOFT [Suspect]

REACTIONS (1)
  - PNEUMONIA [None]
